FAERS Safety Report 7222013-7 (Version None)
Quarter: 2011Q1

REPORT INFORMATION
  Report Type: 
  Country: None (occurrence: None)
  Receive Date: 20110112
  Receipt Date: 20110103
  Transmission Date: 20110831
  Serious: No
  Sender: FDA-Public Use
  Company Number: US-ELI_LILLY_AND_COMPANY-US201011006977

PATIENT
  Age: 48 Year
  Sex: Male

DRUGS (4)
  1. COZAAR [Concomitant]
  2. AMLODIPINE [Concomitant]
  3. CIALIS [Suspect]
     Indication: ERECTILE DYSFUNCTION
     Dosage: 2.5 MG, UNK
  4. ALLEGRA [Concomitant]

REACTIONS (2)
  - FEELING ABNORMAL [None]
  - COLOUR BLINDNESS ACQUIRED [None]
